FAERS Safety Report 18213463 (Version 1)
Quarter: 2020Q3

REPORT INFORMATION
  Report Type: Spontaneous
  Country: US (occurrence: US)
  Receive Date: 20200831
  Receipt Date: 20200831
  Transmission Date: 20201103
  Serious: No
  Sender: FDA-Public Use
  Company Number: US-SA-2020SA230863

PATIENT

DRUGS (1)
  1. LANTUS [Suspect]
     Active Substance: INSULIN GLARGINE
     Indication: TYPE 2 DIABETES MELLITUS
     Dosage: 18 UNITS ONCE A DAY
     Route: 065

REACTIONS (5)
  - Feeling abnormal [Unknown]
  - Wrong technique in device usage process [Unknown]
  - Moaning [Unknown]
  - Cough [Unknown]
  - Product storage error [Unknown]
